FAERS Safety Report 6805874-2 (Version None)
Quarter: 2010Q2

REPORT INFORMATION
  Report Type: 
  Country: None (occurrence: None)
  Receive Date: 20100629
  Receipt Date: 20071107
  Transmission Date: 20101027
  Serious: No
  Sender: FDA-Public Use
  Company Number: US-PFIZER INC-2007094708

PATIENT
  Sex: Male
  Weight: 68.95 kg

DRUGS (8)
  1. DOXAZOSIN MESYLATE [Suspect]
     Route: 048
     Dates: start: 20070701
  2. DEPAKOTE [Suspect]
     Indication: CONVULSION
     Route: 048
     Dates: start: 20071001
  3. DEPAKOTE [Suspect]
     Indication: AFFECTIVE DISORDER
  4. AMLODIPINE [Concomitant]
     Route: 048
  5. CLONAZEPAM [Concomitant]
     Route: 048
  6. SOMA [Concomitant]
     Route: 048
  7. PROPACET 100 [Concomitant]
     Route: 048
  8. CELECOXIB [Concomitant]
     Route: 048

REACTIONS (3)
  - FLIGHT OF IDEAS [None]
  - SENSORY DISTURBANCE [None]
  - TINNITUS [None]
